FAERS Safety Report 20058738 (Version 6)
Quarter: 2023Q1

REPORT INFORMATION
  Report Type: Spontaneous
  Country: ES (occurrence: ES)
  Receive Date: 20211111
  Receipt Date: 20230217
  Transmission Date: 20230418
  Serious: Yes (Other)
  Sender: FDA-Public Use
  Company Number: ES-STADA-235537

PATIENT
  Age: 50 Year
  Sex: Female

DRUGS (21)
  1. ALPRAZOLAM [Suspect]
     Active Substance: ALPRAZOLAM
     Indication: Schizophrenia
     Dosage: 1 MG, TID
     Route: 065
  2. ALPRAZOLAM [Suspect]
     Active Substance: ALPRAZOLAM
     Indication: Depression
  3. REBOXETINE [Suspect]
     Active Substance: REBOXETINE
     Indication: Schizophrenia
     Dosage: 4 MG, 2X/DAY
     Route: 065
  4. REBOXETINE [Suspect]
     Active Substance: REBOXETINE
     Indication: Depression
  5. QUETIAPINE [Suspect]
     Active Substance: QUETIAPINE
     Indication: Schizophrenia
     Dosage: 300 MG, Q.D. (0-0-1)
     Route: 065
  6. QUETIAPINE [Suspect]
     Active Substance: QUETIAPINE
     Indication: Depression
  7. CLOTHIAPINE [Suspect]
     Active Substance: CLOTHIAPINE
     Indication: Schizophrenia
     Dosage: 40 MG, Q.D. (0-0-1)
     Route: 065
  8. CLOTHIAPINE [Suspect]
     Active Substance: CLOTHIAPINE
     Indication: Depression
  9. TRAZODONE [Suspect]
     Active Substance: TRAZODONE HYDROCHLORIDE
     Indication: Schizophrenia
     Dosage: 100 MG, Q.D. (0-0-1)
     Route: 065
  10. TRAZODONE [Suspect]
     Active Substance: TRAZODONE HYDROCHLORIDE
     Indication: Depression
  11. BUPROPION [Suspect]
     Active Substance: BUPROPION
     Indication: Schizophrenia
     Dosage: 150 MG, Q.D. (1-0-0)
     Route: 065
  12. BUPROPION [Suspect]
     Active Substance: BUPROPION
     Indication: Depression
  13. LORMETAZEPAM [Suspect]
     Active Substance: LORMETAZEPAM
     Indication: Schizophrenia
     Dosage: 2 MG, Q.D.
     Route: 065
  14. LORMETAZEPAM [Suspect]
     Active Substance: LORMETAZEPAM
     Indication: Depression
  15. TIOTROPIUM BROMIDE [Concomitant]
     Active Substance: TIOTROPIUM BROMIDE
     Indication: Emphysema
     Dosage: 2.5 MG, 1X/DAY
     Route: 065
     Dates: start: 2019
  16. PREGABALIN [Concomitant]
     Active Substance: PREGABALIN
     Indication: Lumbar hernia
     Dosage: 150 MG, T.I.D. , (1-1-1);
     Route: 065
     Dates: start: 2019
  17. BUDESONIDE\FORMOTEROL [Concomitant]
     Active Substance: BUDESONIDE\FORMOTEROL
     Indication: Emphysema
     Dosage: 160 MG (INHALERS)
     Route: 045
     Dates: start: 2019
  18. FENTANYL [Concomitant]
     Active Substance: FENTANYL
     Indication: Lumbar hernia
     Dosage: 25 UG (CHANGED EVERY 3 DAYS)
     Route: 062
     Dates: start: 2019
  19. ACETAMINOPHEN [Concomitant]
     Active Substance: ACETAMINOPHEN
     Indication: Intervertebral disc protrusion
     Dosage: 1 GRAM, T.I.D.
     Route: 065
     Dates: start: 2019
  20. OMEPRAZOLE [Concomitant]
     Active Substance: OMEPRAZOLE
     Indication: Lumbar hernia
     Dosage: 20 MG, Q.D.
     Route: 065
     Dates: start: 2019
  21. OXYGEN [Concomitant]
     Active Substance: OXYGEN
     Indication: Emphysema
     Dosage: UNK
     Route: 065

REACTIONS (4)
  - Oral candidiasis [Recovered/Resolved]
  - Disease recurrence [Recovered/Resolved]
  - Dry mouth [Recovered/Resolved]
  - Off label use [Unknown]
